FAERS Safety Report 8208558-1 (Version None)
Quarter: 2012Q1

REPORT INFORMATION
  Report Type: 
  Country: None (occurrence: None)
  Receive Date: 20120314
  Receipt Date: 20120208
  Transmission Date: 20120608
  Serious: Yes (Other)
  Sender: FDA-Public Use
  Company Number: US-GLAXOSMITHKLINE-A0965170A

PATIENT
  Age: 62 Year
  Sex: Female

DRUGS (7)
  1. VOTRIENT [Suspect]
     Indication: RENAL CANCER
     Dosage: 400MG TWICE PER DAY
     Route: 048
     Dates: start: 20120202
  2. CELEXA [Concomitant]
  3. ASCORBIC ACID [Concomitant]
  4. MULTIPLE VITAMIN [Concomitant]
  5. COUMADIN [Concomitant]
  6. ATIVAN [Concomitant]
  7. NEURONTIN [Concomitant]

REACTIONS (6)
  - FATIGUE [None]
  - ABDOMINAL DISCOMFORT [None]
  - DIARRHOEA [None]
  - NAUSEA [None]
  - HYPERSOMNIA [None]
  - VAGINAL HAEMORRHAGE [None]
